FAERS Safety Report 17685068 (Version 1)
Quarter: 2020Q2

REPORT INFORMATION
  Report Type: Report from Study
  Country: GF (occurrence: GF)
  Receive Date: 20200420
  Receipt Date: 20200420
  Transmission Date: 20200714
  Serious: Yes (Other)
  Sender: FDA-Public Use
  Company Number: GF-VIIV HEALTHCARE LIMITED-GF2020GSK065918

PATIENT

DRUGS (2)
  1. ZALCITABINE [Suspect]
     Active Substance: ZALCITABINE
     Indication: HIV INFECTION
     Dosage: UNK
  2. ZIDOVUDINE. [Suspect]
     Active Substance: ZIDOVUDINE
     Indication: HIV INFECTION
     Dosage: UNK

REACTIONS (7)
  - Lymphadenopathy [Unknown]
  - Cholestasis [Unknown]
  - Condition aggravated [Unknown]
  - Histoplasmosis [Unknown]
  - Pyrexia [Unknown]
  - Immune reconstitution inflammatory syndrome [Unknown]
  - Weight decreased [Unknown]
